FAERS Safety Report 6126708-8 (Version None)
Quarter: 2009Q1

REPORT INFORMATION
  Report Type: 
  Country: None (occurrence: None)
  Receive Date: 20090320
  Receipt Date: 20090318
  Transmission Date: 20090719
  Serious: Yes (Death, Hospitalization, Other)
  Sender: FDA-Public Use
  Company Number: PHHY2009BR10097

PATIENT
  Age: 84 Year
  Sex: Male
  Weight: 67 kg

DRUGS (7)
  1. COMTAN [Suspect]
     Indication: PARKINSON'S DISEASE
     Dosage: 200 MG, UNK
  2. COMTAN [Suspect]
     Indication: DEMENTIA ALZHEIMER'S TYPE
  3. ANTIBIOTICS [Suspect]
  4. EBIXA [Concomitant]
     Indication: DEMENTIA ALZHEIMER'S TYPE
     Dosage: UNK
     Dates: start: 20040101
  5. PROLOPA [Concomitant]
     Indication: PARKINSON'S DISEASE
     Dosage: UNK
     Dates: start: 20040101
  6. MANTIDAN [Concomitant]
     Dosage: UNK
     Dates: start: 20040101
  7. ERANZ [Concomitant]
     Indication: DEMENTIA ALZHEIMER'S TYPE
     Dosage: UNK
     Dates: start: 20040101

REACTIONS (6)
  - BLADDER CANCER RECURRENT [None]
  - DRUG INEFFECTIVE [None]
  - HAEMATURIA [None]
  - PNEUMONIA [None]
  - PYREXIA [None]
  - THERAPEUTIC PROCEDURE [None]
